FAERS Safety Report 6110214-0 (Version None)
Quarter: 2009Q1

REPORT INFORMATION
  Report Type: 
  Country: None (occurrence: None)
  Receive Date: 20090310
  Receipt Date: 20090306
  Transmission Date: 20090719
  Serious: Yes (Death)
  Sender: FDA-Public Use
  Company Number: DE-EISAI MEDICAL RESEARCH-E2090-00679-SPO-DE

PATIENT
  Age: 67 Year
  Sex: Male

DRUGS (1)
  1. ZONEGRAN [Suspect]
     Indication: EPILEPSY
     Route: 048
     Dates: start: 20090213, end: 20090215

REACTIONS (3)
  - HEPATIC CIRRHOSIS [None]
  - HYPOTHERMIA [None]
  - RENAL FAILURE [None]
